APPROVED DRUG PRODUCT: DOXEPIN HYDROCHLORIDE
Active Ingredient: DOXEPIN HYDROCHLORIDE
Strength: EQ 25MG BASE
Dosage Form/Route: CAPSULE;ORAL
Application: A071502 | Product #001
Applicant: SUN PHARMACEUTICAL INDUSTRIES INC
Approved: Feb 18, 1988 | RLD: No | RS: No | Type: DISCN